FAERS Safety Report 5658159-4 (Version None)
Quarter: 2008Q1

REPORT INFORMATION
  Report Type: 
  Country: None (occurrence: None)
  Receive Date: 20080310
  Receipt Date: 20070103
  Transmission Date: 20080703
  Serious: No
  Sender: FDA-Public Use
  Company Number: US-BAYER-200615116BCC

PATIENT
  Age: 75 Year
  Sex: Female
  Weight: 75 kg

DRUGS (3)
  1. ALEVE [Suspect]
     Indication: ARTHRITIS
     Dosage: UNIT DOSE: 220 MG
     Route: 048
     Dates: start: 20060801, end: 20061227
  2. DILTIAZEM XR [Concomitant]
  3. DIOVAN [Concomitant]

REACTIONS (1)
  - SWELLING FACE [None]
